FAERS Safety Report 4523307-6 (Version None)
Quarter: 2004Q4

REPORT INFORMATION
  Report Type: 
  Country: None (occurrence: None)
  Receive Date: 20041210
  Receipt Date: 20041129
  Transmission Date: 20050328
  Serious: Yes (Life-Threatening, Hospitalization)
  Sender: FDA-Public Use
  Company Number: JP-JNJFOC-20041103959

PATIENT
  Sex: Female

DRUGS (10)
  1. ITRIZOLE [Suspect]
     Route: 049
     Dates: start: 20041026, end: 20041102
  2. ITRIZOLE [Suspect]
     Indication: ONYCHOMYCOSIS
     Route: 049
     Dates: start: 20041026, end: 20041102
  3. CALCIUM LACTATE [Concomitant]
     Indication: OSTEOPOROSIS
     Route: 049
  4. CALCITRIOL [Concomitant]
     Indication: OSTEOPOROSIS
     Route: 003
  5. REBAMIPIDE [Concomitant]
     Indication: NAIL TINEA
     Route: 049
  6. FELBINAC [Concomitant]
     Indication: OSTEOPOROSIS
     Route: 065
  7. CANDESARTAN CILEXETIL [Concomitant]
     Route: 049
  8. CANDESARTAN CILEXETIL [Concomitant]
     Indication: HYPERTENSION
     Route: 049
  9. MILNACIPRAN HYDROCHLORIDE [Concomitant]
     Route: 049
  10. MILNACIPRAN HYDROCHLORIDE [Concomitant]
     Indication: HYPERTENSION
     Route: 049

REACTIONS (38)
  - ALANINE AMINOTRANSFERASE INCREASED [None]
  - ANAPHYLACTIC SHOCK [None]
  - ANOREXIA [None]
  - ASPARTATE AMINOTRANSFERASE INCREASED [None]
  - AURICULAR SWELLING [None]
  - BLOOD PRESSURE DECREASED [None]
  - C-REACTIVE PROTEIN INCREASED [None]
  - CIRCULATORY COLLAPSE [None]
  - DEPRESSED LEVEL OF CONSCIOUSNESS [None]
  - DERMATITIS EXFOLIATIVE [None]
  - DISSEMINATED INTRAVASCULAR COAGULATION [None]
  - DRUG ERUPTION [None]
  - EAR DISORDER [None]
  - ERYTHEMA [None]
  - ERYTHEMA MULTIFORME [None]
  - FEELING COLD [None]
  - FEELING HOT [None]
  - FLUSHING [None]
  - GAMMA-GLUTAMYLTRANSFERASE INCREASED [None]
  - GASTRIC ULCER [None]
  - GASTRIC ULCER HAEMORRHAGE [None]
  - HAEMATEMESIS [None]
  - HEADACHE [None]
  - HEPATIC FUNCTION ABNORMAL [None]
  - HYPERTENSION [None]
  - LIVER DISORDER [None]
  - LOSS OF CONSCIOUSNESS [None]
  - MALAISE [None]
  - MELAENA [None]
  - OEDEMA [None]
  - PLATELET COUNT DECREASED [None]
  - PRURITUS GENERALISED [None]
  - PYREXIA [None]
  - RESTLESSNESS [None]
  - SKIN DESQUAMATION [None]
  - SWELLING FACE [None]
  - THIRST [None]
  - WHITE BLOOD CELL COUNT INCREASED [None]
